FAERS Safety Report 10539968 (Version 1)
Quarter: 2014Q4

REPORT INFORMATION
  Report Type: Spontaneous
  Country: US (occurrence: None)
  Receive Date: 20141023
  Receipt Date: 20141023
  Transmission Date: 20150529
  Serious: Yes (Other)
  Sender: FDA-Public Use
  Company Number: None

PATIENT
  Age: 53 Year
  Sex: Female
  Weight: 70.31 kg

DRUGS (1)
  1. VANCOMYCIN 1GM HOSPIRA [Suspect]
     Active Substance: VANCOMYCIN
     Indication: OSTEOMYELITIS
     Route: 042
     Dates: start: 20140211, end: 20140214

REACTIONS (3)
  - Pruritus [None]
  - Infusion related reaction [None]
  - Product quality issue [None]

NARRATIVE: CASE EVENT DATE: 20140212
